FAERS Safety Report 5864531-X (Version None)
Quarter: 2008Q3

REPORT INFORMATION
  Report Type: 
  Country: None (occurrence: None)
  Receive Date: 20080829
  Receipt Date: 20080826
  Transmission Date: 20090109
  Serious: Yes (Hospitalization)
  Sender: FDA-Public Use
  Company Number: FR-AVENTIS-200812479FR

PATIENT
  Age: 14 Year
  Sex: Male

DRUGS (16)
  1. ARAVA [Suspect]
     Indication: IMMUNOSUPPRESSION
     Route: 048
     Dates: start: 20080424
  2. SECTRAL [Suspect]
     Route: 048
  3. PROGRAF [Suspect]
     Indication: LUNG TRANSPLANT
     Route: 048
  4. RENITEC                            /00574901/ [Suspect]
     Route: 048
     Dates: end: 20080426
  5. RENITEC                            /00574901/ [Suspect]
     Route: 048
     Dates: start: 20080426
  6. CHRONADALATE [Suspect]
     Route: 048
  7. COZAAR [Suspect]
     Route: 048
     Dates: start: 20080426, end: 20080531
  8. COZAAR [Suspect]
     Route: 048
     Dates: start: 20080531
  9. ESTULIC                            /00547901/ [Suspect]
     Route: 048
     Dates: start: 20080522
  10. CORTANCYL [Concomitant]
     Indication: LUNG TRANSPLANT
     Route: 048
  11. BACTRIM [Concomitant]
  12. MOPRAL [Concomitant]
  13. RENAGEL                            /01459902/ [Concomitant]
  14. CREON [Concomitant]
  15. UN-ALFA [Concomitant]
  16. KAYEXALATE [Concomitant]

REACTIONS (3)
  - ELECTROCARDIOGRAM QT PROLONGED [None]
  - HYPERTENSION [None]
  - MEDICATION ERROR [None]
